FAERS Safety Report 9601027 (Version 2)
Quarter: 2013Q4

REPORT INFORMATION
  Report Type: Spontaneous
  Country: US (occurrence: US)
  Receive Date: 20131004
  Receipt Date: 20131004
  Transmission Date: 20140711
  Serious: No
  Sender: FDA-Public Use
  Company Number: US-AMGEN-USASP2013019482

PATIENT
  Age: 66 Year
  Sex: Male

DRUGS (7)
  1. ENBREL [Suspect]
     Indication: PSORIASIS
     Dosage: 50 MG, 2 TIMES/WK
     Route: 058
     Dates: start: 20130117, end: 20130315
  2. ZOCOR [Concomitant]
     Dosage: 5 MG, UNK
  3. COLCHICINE [Concomitant]
     Dosage: 0.6 MG, UNK
  4. PARLODEL [Concomitant]
     Dosage: 5 MG, UNK
  5. AVAPRO [Concomitant]
     Dosage: 300 MG, UNK
  6. ALLEGRA-D [Concomitant]
     Dosage: UNK, 12 HOUR
  7. LEVOTHYROXIN [Concomitant]
     Dosage: 100 MCG,   UNK

REACTIONS (6)
  - Drug hypersensitivity [Unknown]
  - Pruritus generalised [Recovered/Resolved]
  - Injection site swelling [Recovered/Resolved]
  - Injection site erythema [Recovered/Resolved]
  - Injection site pruritus [Unknown]
  - Injection site reaction [Unknown]
